FAERS Safety Report 19469845 (Version 1)
Quarter: 2021Q2

REPORT INFORMATION
  Report Type: Spontaneous
  Country: US (occurrence: US)
  Receive Date: 20210628
  Receipt Date: 20210628
  Transmission Date: 20210717
  Serious: Yes (Hospitalization)
  Sender: FDA-Public Use
  Company Number: US-PFIZER INC-2021598993

PATIENT
  Age: 67 Year
  Sex: Female

DRUGS (1)
  1. IBRANCE [Suspect]
     Active Substance: PALBOCICLIB
     Indication: BREAST CANCER FEMALE
     Dosage: 100 MG, 1X/DAY (1 TAB QD PO 21 DAYS ON THEN 7 DAYS OFF)
     Route: 048
     Dates: start: 20200317, end: 20210522

REACTIONS (2)
  - Blood glucose increased [Unknown]
  - Hernia [Unknown]
